FAERS Safety Report 4380481-2 (Version None)
Quarter: 2004Q2

REPORT INFORMATION
  Report Type: 
  Country: None (occurrence: None)
  Receive Date: 20040618
  Receipt Date: 20040608
  Transmission Date: 20050107
  Serious: Yes (Other)
  Sender: FDA-Public Use
  Company Number: US-JNJFOC-20040602299

PATIENT
  Sex: Female
  Weight: 44 kg

DRUGS (4)
  1. REMICADE [Suspect]
     Dosage: ON DRUG FOR 1 1/2 - 2 YEARS TOTAL. LAST INFUSION 03-MAY-2004.
     Route: 042
  2. REMICADE [Suspect]
     Indication: RHEUMATOID ARTHRITIS
     Dosage: ON DRUG FOR 1 1/2 - 2 YEARS TOTAL.
     Route: 042
  3. PAXIL [Concomitant]
     Dosage: 12.5MG OR 25MG, QD
  4. METHOTREXATE [Concomitant]

REACTIONS (8)
  - HAEMORRHAGE [None]
  - OROPHARYNGEAL SWELLING [None]
  - PAIN [None]
  - PARKINSON'S DISEASE [None]
  - RHEUMATOID FACTOR DECREASED [None]
  - SWELLING [None]
  - TREMOR [None]
  - VOCAL CORD DISORDER [None]
